FAERS Safety Report 21919698 (Version 20)
Quarter: 2023Q4

REPORT INFORMATION
  Report Type: Report from Study
  Country: US (occurrence: US)
  Receive Date: 20230127
  Receipt Date: 20231027
  Transmission Date: 20240110
  Serious: Yes (Life-Threatening, Hospitalization)
  Sender: FDA-Public Use
  Company Number: US-002147023-NVSC2023US017822

PATIENT
  Age: 60 Year
  Sex: Male
  Weight: 61.9 kg

DRUGS (8)
  1. PLUVICTO [Suspect]
     Active Substance: LUTETIUM LU-177 VIPIVOTIDE TETRAXETAN
     Indication: Hormone-refractory prostate cancer
     Dosage: 7.42 GBQ, ONCE/SINGLE
     Route: 042
     Dates: start: 20220803
  2. LOCAMETZ [Suspect]
     Active Substance: PSMA-HBED-CC
     Indication: Hormone-refractory prostate cancer
     Dosage: 3.76 MCI, ONCE/SINGLE
     Route: 042
     Dates: start: 20220708
  3. CALCIUM ACETATE [Concomitant]
     Active Substance: CALCIUM ACETATE
     Indication: General physical condition
     Dosage: UNK
     Route: 065
     Dates: start: 20180625
  4. IBUPROFEN [Concomitant]
     Active Substance: IBUPROFEN
     Indication: Cancer pain
     Dosage: UNK
     Route: 065
     Dates: start: 20201104
  5. POTASSIUM [Concomitant]
     Active Substance: POTASSIUM
     Indication: General physical condition
     Dosage: UNK
     Route: 065
     Dates: start: 20210421
  6. VITAMINS [Concomitant]
     Active Substance: VITAMINS
     Indication: General physical condition
     Dosage: UNK
     Route: 065
     Dates: start: 20180625
  7. TRIPTORELIN [Concomitant]
     Active Substance: TRIPTORELIN
     Indication: Androgen therapy
     Dosage: UNK
     Route: 065
     Dates: start: 20210421, end: 20230125
  8. DOCETAXEL [Concomitant]
     Active Substance: DOCETAXEL
     Indication: Prostate cancer
     Dosage: UNK
     Route: 065
     Dates: start: 20230112, end: 20230125

REACTIONS (1)
  - Dyspnoea [Not Recovered/Not Resolved]

NARRATIVE: CASE EVENT DATE: 20230123
